FAERS Safety Report 15775036 (Version 2)
Quarter: 2018Q4

REPORT INFORMATION
  Report Type: Spontaneous
  Country: JP (occurrence: JP)
  Receive Date: 20181231
  Receipt Date: 20181231
  Transmission Date: 20190205
  Serious: Yes (Death, Other)
  Sender: FDA-Public Use
  Company Number: JP-ROCHE-2236012

PATIENT
  Age: 41 Year
  Sex: Female

DRUGS (16)
  1. DOCETAXEL HYDRATE [Concomitant]
     Active Substance: DOCETAXEL
     Indication: BREAST CANCER
     Route: 041
  2. XELODA [Concomitant]
     Active Substance: CAPECITABINE
     Indication: BREAST CANCER
     Route: 048
  3. CYCLOPHOSPHAMIDE. [Concomitant]
     Active Substance: CYCLOPHOSPHAMIDE
     Indication: BREAST CANCER
     Route: 065
  4. HERCEPTIN [Suspect]
     Active Substance: TRASTUZUMAB
     Dosage: ADMINISTARTION PERIOD: 2 COURSES
     Route: 042
  5. AVASTIN [Suspect]
     Active Substance: BEVACIZUMAB
     Indication: BREAST CANCER
     Dosage: DOSAGE IS UNCERTAIN. ?ADMINISTRATION PERIOD: 8 COURSES
     Route: 041
  6. HERCEPTIN [Suspect]
     Active Substance: TRASTUZUMAB
     Dosage: ADMINISTARTION PERIOD: 3 COURSES
     Route: 042
  7. XELODA [Concomitant]
     Active Substance: CAPECITABINE
     Indication: BREAST CANCER
  8. CARBOPLATIN. [Concomitant]
     Active Substance: CARBOPLATIN
     Indication: BREAST CANCER
     Route: 041
  9. HERCEPTIN [Suspect]
     Active Substance: TRASTUZUMAB
     Indication: BREAST CANCER
     Dosage: ADMINISTARTION PERIOD: 6 COURSES
     Route: 042
  10. PACLITAXEL. [Concomitant]
     Active Substance: PACLITAXEL
     Indication: BREAST CANCER
     Dosage: DOSAGE IS UNCERTAIN. ?ADMINISTRATION PERIOD: 8 COURSES
     Route: 041
  11. DOCETAXEL HYDRATE [Concomitant]
     Active Substance: DOCETAXEL
     Indication: BREAST CANCER
  12. XELODA [Concomitant]
     Active Substance: CAPECITABINE
     Indication: BREAST CANCER
  13. GEMCITABINE HYDROCHLORIDE. [Concomitant]
     Active Substance: GEMCITABINE HYDROCHLORIDE
     Indication: BREAST CANCER
     Route: 041
  14. HERCEPTIN [Suspect]
     Active Substance: TRASTUZUMAB
     Dosage: ADMINISTARTION PERIOD: 4 COURSES
     Route: 042
  15. HERCEPTIN [Suspect]
     Active Substance: TRASTUZUMAB
     Dosage: ADMINISTARTION PERIOD: 1 COURSES
     Route: 042
  16. VINORELBINE BITARTRATE [Concomitant]
     Active Substance: VINORELBINE\VINORELBINE TARTRATE
     Indication: BREAST CANCER
     Route: 042

REACTIONS (6)
  - Perforation [Unknown]
  - Metastases to bone [Unknown]
  - Breast cancer [Fatal]
  - Metastases to lung [Unknown]
  - Drug ineffective [Unknown]
  - Metastases to liver [Unknown]
